FAERS Safety Report 7970119-7 (Version None)
Quarter: 2011Q4

REPORT INFORMATION
  Report Type: 
  Country: None (occurrence: None)
  Receive Date: 20111122
  Receipt Date: 20110621
  Transmission Date: 20120403
  Serious: No
  Sender: FDA-Public Use
  Company Number: PHHY2011US40194

PATIENT
  Sex: Female
  Weight: 54.4 kg

DRUGS (3)
  1. FAMPRIDINE (FAMPRIDINE) [Suspect]
     Dosage: 10 MG, BID, ORAL
     Route: 048
     Dates: start: 20110201, end: 20110422
  2. GILENYA [Suspect]
     Dosage: ORAL
     Route: 048
     Dates: start: 20110201, end: 20110421
  3. LABETALOL HCL [Concomitant]

REACTIONS (2)
  - ABDOMINAL DISCOMFORT [None]
  - NAUSEA [None]
